FAERS Safety Report 15478518 (Version 2)
Quarter: 2018Q4

REPORT INFORMATION
  Report Type: Spontaneous
  Country: JP (occurrence: JP)
  Receive Date: 20181009
  Receipt Date: 20181009
  Transmission Date: 20190205
  Serious: Yes (Other)
  Sender: FDA-Public Use
  Company Number: JP-TEVA-201712_00001034

PATIENT
  Age: 62 Year
  Sex: Female

DRUGS (6)
  1. PREDNISOLONE. [Concomitant]
     Active Substance: PREDNISOLONE
     Route: 048
  2. BLOPRESS TABLETS 8 [Suspect]
     Active Substance: CANDESARTAN CILEXETIL
     Indication: HYPERTENSION
     Route: 048
  3. TAIPROTON CAPSULE 30MG [Suspect]
     Active Substance: LANSOPRAZOLE
     Indication: PRODUCT USED FOR UNKNOWN INDICATION
     Route: 065
     Dates: end: 20171211
  4. RISEDRONATE SODIUM. [Concomitant]
     Active Substance: RISEDRONATE SODIUM
     Route: 048
  5. CICLOSPORIN [Concomitant]
     Active Substance: CYCLOSPORINE
     Route: 048
  6. LEVOTHYROXINE SODIUM. [Concomitant]
     Active Substance: LEVOTHYROXINE SODIUM
     Route: 048

REACTIONS (2)
  - Protein-losing gastroenteropathy [Recovered/Resolved]
  - Colitis microscopic [Recovered/Resolved]

NARRATIVE: CASE EVENT DATE: 20171121
